FAERS Safety Report 5074124-2 (Version None)
Quarter: 2006Q3

REPORT INFORMATION
  Report Type: 
  Country: None (occurrence: None)
  Receive Date: 20060808
  Receipt Date: 20060727
  Transmission Date: 20061208
  Serious: Yes (Other)
  Sender: FDA-Public Use
  Company Number: AU-BRISTOL-MYERS SQUIBB COMPANY-13456603

PATIENT
  Age: 64 Year
  Sex: Male

DRUGS (1)
  1. MAXIPIME [Suspect]
     Indication: OSTEOMYELITIS
     Route: 042
     Dates: end: 20050110

REACTIONS (3)
  - NEUTROPENIA [None]
  - PARAESTHESIA [None]
  - PRURITUS [None]
